FAERS Safety Report 9549008 (Version 1)
Quarter: 2013Q3

REPORT INFORMATION
  Report Type: Spontaneous
  Country: US (occurrence: US)
  Receive Date: 20130924
  Receipt Date: 20130924
  Transmission Date: 20140515
  Serious: Yes (Other)
  Sender: FDA-Public Use
  Company Number: US-PFIZER INC-2013273871

PATIENT
  Sex: Male

DRUGS (1)
  1. LYRICA [Suspect]
     Indication: MUSCULOSKELETAL CHEST PAIN
     Dosage: THREE TIMES PER DAY

REACTIONS (2)
  - Off label use [Unknown]
  - Pulmonary oedema [Unknown]
